FAERS Safety Report 5301279-4 (Version None)
Quarter: 2007Q2

REPORT INFORMATION
  Report Type: 
  Country: None (occurrence: None)
  Receive Date: 20070418
  Receipt Date: 20070412
  Transmission Date: 20071010
  Serious: Yes (Hospitalization)
  Sender: FDA-Public Use
  Company Number: FR-ABBOTT-07P-056-0364846-00

PATIENT
  Age: 10 Year
  Sex: Female

DRUGS (3)
  1. MICROPAKINE GRANULE 33 PERCENT [Suspect]
     Indication: EPILEPSY
     Route: 048
  2. LAMOTRIGINE [Concomitant]
     Indication: EPILEPSY
     Route: 048
  3. CLOBAZAM [Concomitant]
     Indication: EPILEPSY
     Route: 048

REACTIONS (1)
  - INTESTINAL OBSTRUCTION [None]
